FAERS Safety Report 18448767 (Version 1)
Quarter: 2020Q4

REPORT INFORMATION
  Report Type: Spontaneous
  Country: CN (occurrence: CN)
  Receive Date: 20201030
  Receipt Date: 20201030
  Transmission Date: 20210114
  Serious: Yes (Hospitalization)
  Sender: FDA-Public Use
  Company Number: CN-BAXTER-2020BAX021979

PATIENT
  Age: 51 Year
  Sex: Female
  Weight: 44.5 kg

DRUGS (8)
  1. SODIUM CHLORIDE. [Suspect]
     Active Substance: SODIUM CHLORIDE
     Indication: MEDICATION DILUTION
     Dosage: DAY 1, 0.9% SODIUM CHLORIDE + ENDOXAN 0.75G
     Route: 041
     Dates: start: 20200914, end: 20200914
  2. SODIUM CHLORIDE. [Suspect]
     Active Substance: SODIUM CHLORIDE
     Dosage: DOSE REINTRODUCED, 0.9% SODIUM CHLORIDE + ENDOXAN
     Route: 041
     Dates: start: 202010
  3. PHARMORUBICIN [Suspect]
     Active Substance: EPIRUBICIN
     Dosage: DOSE REINTRODUCED, 0.9% SODIUM CHLORIDE + PHARMORUBICIN
     Route: 042
     Dates: start: 202010
  4. PHARMORUBICIN [Suspect]
     Active Substance: EPIRUBICIN
     Indication: BREAST CANCER FEMALE
     Dosage: DAY 1, 0.9% SODIUM CHLORIDE 50ML + PHARMORUBICIN
     Route: 042
     Dates: start: 20200914, end: 20200914
  5. SODIUM CHLORIDE. [Suspect]
     Active Substance: SODIUM CHLORIDE
     Dosage: DOSE REINTRODUCED, 0.9% SODIUM CHLORIDE + PHARMORUBICIN
     Route: 042
     Dates: start: 202010
  6. ENDOXAN [Suspect]
     Active Substance: CYCLOPHOSPHAMIDE
     Dosage: DOSE REINTRODUCED, 0.9% SODIUM CHLORIDE + ENDOXAN
     Route: 041
     Dates: start: 202010
  7. SODIUM CHLORIDE. [Suspect]
     Active Substance: SODIUM CHLORIDE
     Indication: MEDICATION DILUTION
     Dosage: DAY 1, 0.9% SODIUM CHLORIDE+ PHARMORUBICIN 115 MG
     Route: 042
     Dates: start: 20200914, end: 20200914
  8. ENDOXAN [Suspect]
     Active Substance: CYCLOPHOSPHAMIDE
     Indication: BREAST CANCER FEMALE
     Dosage: DAY 1, 0.9% SODIUM CHLORIDE 100ML + ENDOXAN
     Route: 041
     Dates: start: 20200914, end: 20200914

REACTIONS (4)
  - Condition aggravated [Recovering/Resolving]
  - Hepatic function abnormal [Recovering/Resolving]
  - Neutropenia [Recovering/Resolving]
  - Leukopenia [Recovering/Resolving]

NARRATIVE: CASE EVENT DATE: 20201002
